FAERS Safety Report 8171170-7 (Version None)
Quarter: 2012Q1

REPORT INFORMATION
  Report Type: 
  Country: None (occurrence: None)
  Receive Date: 20120228
  Receipt Date: 20111129
  Transmission Date: 20120608
  Serious: No
  Sender: FDA-Public Use
  Company Number: US-BRISTOL-MYERS SQUIBB COMPANY-16257990

PATIENT
  Sex: Male

DRUGS (17)
  1. FOSINOPRIL SODIUM [Concomitant]
  2. GLUCOTROL [Concomitant]
  3. EXFORGE [Concomitant]
  4. TAMSULOSIN HCL [Concomitant]
  5. TETRACYCLINE [Concomitant]
     Dosage: TERACIN
  6. AMIODARONE HCL [Concomitant]
  7. TOPROL-XL [Concomitant]
  8. PAMELOR [Concomitant]
  9. DUTASTERIDE [Concomitant]
  10. VITAMIN [Concomitant]
  11. ASPIRIN [Concomitant]
  12. PLAVIX [Concomitant]
  13. ONGLYZA [Suspect]
     Indication: DIABETES MELLITUS
     Route: 048
     Dates: start: 20111012
  14. METFORMIN HCL [Concomitant]
  15. HYDROCHLOROTHIAZIDE [Concomitant]
  16. STARLIX [Concomitant]
  17. POTASSIUM CHLORIDE [Concomitant]

REACTIONS (2)
  - DIARRHOEA [None]
  - GLYCOSYLATED HAEMOGLOBIN INCREASED [None]
